FAERS Safety Report 16897360 (Version 1)
Quarter: 2019Q4

REPORT INFORMATION
  Report Type: Other
  Country: US (occurrence: US)
  Receive Date: 20191009
  Receipt Date: 20191009
  Transmission Date: 20200122
  Serious: No
  Sender: FDA-Public Use
  Company Number: US-PRINSTON PHARMACEUTICAL INC.-2019PRN00650

PATIENT
  Sex: Female

DRUGS (3)
  1. UNSPECIFIED MEDICATIONS [Concomitant]
     Active Substance: UNSPECIFIED INGREDIENT
  2. UNSPECIFIED CHEMOTHERAPY [Concomitant]
     Active Substance: UNSPECIFIED INGREDIENT
  3. QUINAPRIL. [Suspect]
     Active Substance: QUINAPRIL
     Indication: BLOOD PRESSURE ABNORMAL
     Dosage: 40 MG, 1X/DAY
     Route: 048
     Dates: start: 2018, end: 201803

REACTIONS (5)
  - Pruritus [Recovered/Resolved]
  - Urticaria [Recovered/Resolved]
  - Product substitution issue [Recovered/Resolved]
  - Drug ineffective [Recovered/Resolved]
  - Joint swelling [Recovered/Resolved]
